FAERS Safety Report 6160565-9 (Version None)
Quarter: 2009Q2

REPORT INFORMATION
  Report Type: 
  Country: None (occurrence: None)
  Receive Date: 20090416
  Receipt Date: 20090408
  Transmission Date: 20091009
  Serious: Yes (Hospitalization)
  Sender: FDA-Public Use
  Company Number: 2009SP005389

PATIENT
  Age: 57 Year
  Sex: Male
  Weight: 86 kg

DRUGS (15)
  1. TEMOZOLOMIDE [Suspect]
     Indication: GLIOBLASTOMA MULTIFORME
     Dosage: 100 MG/M2; 100 MG/M2
     Dates: start: 20090221, end: 20090303
  2. TEMOZOLOMIDE [Suspect]
     Indication: GLIOBLASTOMA MULTIFORME
     Dosage: 100 MG/M2; 100 MG/M2
     Dates: start: 20080316
  3. KEPPRA (CON.) [Concomitant]
  4. SERTRALINE /01011402/ (CON.) [Concomitant]
  5. PROTONIX /01263201/ (CON.) [Concomitant]
  6. CONCERTA (CON.) [Concomitant]
  7. LORAZEPAM (CON.) [Concomitant]
  8. DEXAMETHASONE /0016002/ (CON.) [Concomitant]
  9. ONDANSETRON /00955302/ (CON.) [Concomitant]
  10. STOOL SOFTENER (CON.) [Concomitant]
  11. MILK OF MAGNESIA (CON.) [Concomitant]
  12. CYANOCOBALAMIN (CON.) [Concomitant]
  13. FOLIC ACID (CON.) [Concomitant]
  14. PREDNISONE /00044702/ (CON.) [Concomitant]
  15. ACETAMINOPHEN (CON.) [Concomitant]

REACTIONS (9)
  - COLD AGGLUTININS POSITIVE [None]
  - FALL [None]
  - HAEMOLYTIC ANAEMIA [None]
  - HEAD INJURY [None]
  - PLATELET COUNT DECREASED [None]
  - SUBDURAL HAEMATOMA [None]
  - URINARY INCONTINENCE [None]
  - VISION BLURRED [None]
  - WHITE BLOOD CELL COUNT DECREASED [None]
